FAERS Safety Report 19617459 (Version 12)
Quarter: 2023Q1

REPORT INFORMATION
  Report Type: Report from Study
  Country: KR (occurrence: KR)
  Receive Date: 20210728
  Receipt Date: 20230323
  Transmission Date: 20230417
  Serious: Yes (Death, Hospitalization, Other)
  Sender: FDA-Public Use
  Company Number: KR-CELLTRION INC.-2021KR009948

PATIENT

DRUGS (73)
  1. INVESTIGATIONAL BIOSIMILARS [Suspect]
     Active Substance: INVESTIGATIONAL BIOSIMILARS
     Indication: Bile duct cancer
     Dosage: 360 MG, EVERY 2 WEEKS
     Route: 042
     Dates: start: 20210204
  2. INVESTIGATIONAL BIOSIMILARS [Suspect]
     Active Substance: INVESTIGATIONAL BIOSIMILARS
     Dosage: 240 MG, EVERY 2 WEEKS
     Route: 042
     Dates: start: 20210514
  3. INVESTIGATIONAL BIOSIMILARS [Suspect]
     Active Substance: INVESTIGATIONAL BIOSIMILARS
     Dosage: 216 MG
     Route: 042
     Dates: start: 20211115
  4. INVESTIGATIONAL BIOSIMILARS [Suspect]
     Active Substance: INVESTIGATIONAL BIOSIMILARS
     Dosage: 324 MG
     Route: 042
     Dates: start: 20220103
  5. OXALIPLATIN [Suspect]
     Active Substance: OXALIPLATIN
     Indication: Bile duct cancer
     Dosage: 137 MG
     Route: 042
     Dates: start: 20210204
  6. OXALIPLATIN [Suspect]
     Active Substance: OXALIPLATIN
     Dosage: 105 MG
     Route: 042
     Dates: start: 20210514
  7. LEUCOVORIN [Suspect]
     Active Substance: LEUCOVORIN
     Indication: Bile duct cancer
     Dosage: 324 MG
     Route: 042
     Dates: start: 20210204
  8. LEUCOVORIN [Suspect]
     Active Substance: LEUCOVORIN
     Dosage: 324 MG
     Route: 042
     Dates: start: 20210514
  9. LEUCOVORIN [Suspect]
     Active Substance: LEUCOVORIN
     Dosage: 308 MG
     Route: 042
     Dates: start: 20211115
  10. LEUCOVORIN [Suspect]
     Active Substance: LEUCOVORIN
     Dosage: 308 MG
     Route: 042
     Dates: start: 20220103
  11. FLUOROURACIL [Suspect]
     Active Substance: FLUOROURACIL
     Indication: Bile duct cancer
     Dosage: 648 MG
     Route: 042
     Dates: start: 20210204
  12. FLUOROURACIL [Suspect]
     Active Substance: FLUOROURACIL
     Dosage: 3888 MG
     Route: 042
     Dates: start: 20210204
  13. FLUOROURACIL [Suspect]
     Active Substance: FLUOROURACIL
     Dosage: 3078 MG
     Route: 042
     Dates: start: 20210514
  14. FLUOROURACIL [Suspect]
     Active Substance: FLUOROURACIL
     Dosage: 2310 MG
     Route: 042
     Dates: start: 20211115
  15. FLUOROURACIL [Suspect]
     Active Substance: FLUOROURACIL
     Dosage: 2310 MG
     Route: 042
     Dates: start: 20220103
  16. ADIPAM [Concomitant]
     Indication: Pruritus
     Dosage: 1 TAB, ONCE
     Route: 048
     Dates: start: 20210606, end: 20210606
  17. ALOXI [Concomitant]
     Active Substance: PALONOSETRON HYDROCHLORIDE
     Indication: Prophylaxis
     Dosage: 1 AMP, ONCE
     Route: 042
     Dates: start: 20210204, end: 20210204
  18. BC Morphinsulfate [Concomitant]
     Indication: Prophylaxis
     Dosage: 1 VIAL, PRN
     Route: 042
     Dates: start: 20210528, end: 20210608
  19. LEVOFLOXACIN [Concomitant]
     Active Substance: LEVOFLOXACIN
     Indication: Neutrophil count decreased
     Dosage: 1 TAB, QD
     Route: 048
     Dates: start: 20210416, end: 20210423
  20. PROPACETAMOL HYDROCHLORIDE [Concomitant]
     Active Substance: PROPACETAMOL HYDROCHLORIDE
     Indication: Pyrexia
     Dosage: 0.5 VIAL PRN
     Route: 042
     Dates: start: 20210526, end: 20210528
  21. PROPACETAMOL HYDROCHLORIDE [Concomitant]
     Active Substance: PROPACETAMOL HYDROCHLORIDE
     Indication: Cholangitis
     Dosage: 0.5 VIAL PRN
     Route: 042
     Dates: start: 20210608, end: 20210611
  22. PROPACETAMOL HYDROCHLORIDE [Concomitant]
     Active Substance: PROPACETAMOL HYDROCHLORIDE
     Indication: Prophylaxis
     Dosage: 0.5 VIAL, PRN
     Route: 042
     Dates: start: 20211201
  23. PROPACETAMOL HYDROCHLORIDE [Concomitant]
     Active Substance: PROPACETAMOL HYDROCHLORIDE
     Dosage: 0.5 VIAL QD
     Route: 042
     Dates: start: 20220124, end: 20220125
  24. DEXAMETHASONE [Concomitant]
     Active Substance: DEXAMETHASONE
     Indication: Stomatitis
     Dosage: 100 ML, PRN VIA MOUTH GARGLE
     Dates: start: 20210305
  25. DUPHALAC SYR (P) [Concomitant]
     Indication: Prophylaxis
     Dosage: 15 ML, TID
     Route: 048
     Dates: start: 20210206, end: 20210220
  26. LACTICARE ZEMAGIS [Concomitant]
     Indication: Pruritus
     Dosage: 60G, 1 TUBE FREQUENTLY
     Route: 062
     Dates: start: 20210608, end: 20210620
  27. METOCLOPRAMIDE HYDROCHLORIDE [Concomitant]
     Active Substance: METOCLOPRAMIDE HYDROCHLORIDE
     Indication: Prophylaxis
     Dosage: 1 TAB, PRN
     Route: 048
     Dates: start: 20210206
  28. METOCLOPRAMIDE HYDROCHLORIDE [Concomitant]
     Active Substance: METOCLOPRAMIDE HYDROCHLORIDE
     Indication: Prophylaxis
     Dosage: 1 AMP, PRN
     Route: 042
     Dates: start: 20210219
  29. METOCLOPRAMIDE HYDROCHLORIDE [Concomitant]
     Active Substance: METOCLOPRAMIDE HYDROCHLORIDE
     Dosage: 1 AMP, PRN
     Route: 042
     Dates: start: 20210528, end: 20210530
  30. MAGNESIUM HYDROXIDE [Concomitant]
     Active Substance: MAGNESIUM HYDROXIDE
     Indication: Prophylaxis
     Dosage: 1 TAB, QD
     Route: 048
     Dates: start: 20210206, end: 20210220
  31. MEGACE ORAL SUSPENSION [Concomitant]
     Indication: Prophylaxis
     Dosage: 10 ML, PRN
     Route: 048
     Dates: start: 20201127, end: 20210226
  32. MEGACE ORAL SUSPENSION [Concomitant]
     Dosage: 1 PACK PRN
     Route: 048
     Dates: start: 20210628
  33. REBAMIPIDE [Concomitant]
     Active Substance: REBAMIPIDE
     Indication: Prophylaxis
     Dosage: 1 TAB, TID
     Route: 048
     Dates: start: 20200817
  34. NOLTEC [Concomitant]
     Indication: Prophylaxis
     Dosage: 1 TAB QD
     Route: 048
     Dates: start: 20210125, end: 20210322
  35. PARAMACET SEMI [Concomitant]
     Indication: Prophylaxis
     Dosage: 1 TAB TID
     Route: 048
     Dates: start: 20210202, end: 20210220
  36. PARAMACET SEMI [Concomitant]
     Dosage: 1 TAB, PRN
     Route: 048
     Dates: start: 20210906
  37. PLAKON [Concomitant]
     Indication: Prophylaxis
     Dosage: 1 AMP, QD (CONCENTRATION: 3MG/2ML)
     Route: 042
     Dates: start: 20210204
  38. PLAKON [Concomitant]
     Indication: Pruritus
     Dosage: 0.5 AMP, PRN (CONCENTRATION: 3MG/2ML)
     Route: 042
     Dates: start: 20210219
  39. PLAKON [Concomitant]
     Dosage: 1 AMP ONCE (CONCENTRATION: 3MG/2ML)
     Route: 042
     Dates: start: 20210401, end: 20210401
  40. PLAKON [Concomitant]
     Dosage: 1 AMP ONCE (CONCENTRATION: 3MG/2ML)
     Route: 042
     Dates: start: 20210525, end: 20210525
  41. PLAKON [Concomitant]
     Dosage: 0.5 AMP, PRN  (CONCENTRATION: 3MG/2ML)
     Route: 042
     Dates: start: 20210528, end: 20210611
  42. PLAKON [Concomitant]
     Dosage: 1 AMP ONCE (CONCENTRATION: 3MG/2ML)
     Route: 042
     Dates: start: 20210606, end: 20210606
  43. PLAKON [Concomitant]
     Dosage: 1 AMP, PRN (CONCENTRATION: 3MG/2ML)
     Route: 042
     Dates: start: 20210606, end: 20210606
  44. PLAKON [Concomitant]
     Dosage: 1 AMP, ONCE (CONCENTRATION: 3MG/2ML)
     Route: 042
     Dates: start: 20210917, end: 20210917
  45. POLYBUTINE [Concomitant]
     Indication: Prophylaxis
     Dosage: 1 TAB TID
     Route: 048
     Dates: start: 20200817, end: 20210711
  46. POLYBUTINE [Concomitant]
     Dosage: 2 TAB, TID
     Route: 048
     Dates: start: 20210712
  47. RESOTRON [Concomitant]
     Indication: Prophylaxis
     Dosage: 1 TAB, QD
     Route: 048
     Dates: start: 20210206, end: 20210220
  48. BENZYDAMINE HYDROCHLORIDE [Concomitant]
     Active Substance: BENZYDAMINE HYDROCHLORIDE
     Indication: Stomatitis
     Dosage: 200 ML, PRN VIA MOUTH GARGLE
     Dates: start: 20210219, end: 20210305
  49. VIVIR [Concomitant]
     Indication: Stomatitis
     Dosage: 1 OINT, 5X A DAY
     Route: 061
     Dates: start: 20210305
  50. TRAMADOL HYDROCHLORIDE [Concomitant]
     Active Substance: TRAMADOL HYDROCHLORIDE
     Indication: Prophylaxis
     Dosage: 1 AMP, PRN
     Route: 042
     Dates: start: 20210204, end: 20210204
  51. TYLENOL 8 HOUR ER [Concomitant]
     Indication: Prophylaxis
     Dosage: 1 TAB, QD
     Route: 048
     Dates: start: 20210204
  52. TYLENOL 8 HOUR ER [Concomitant]
     Indication: Pyrexia
     Dosage: 1 TAB, PRN
     Route: 048
     Dates: start: 20210526
  53. TANTUM VERDE NEBULIZER [Concomitant]
     Indication: Prophylaxis
     Dosage: 30 ML, QID MOUTH GARGLE
     Dates: start: 20210206, end: 20210305
  54. WINUF [Concomitant]
     Indication: Prophylaxis
     Dosage: 1 BAG, QD
     Route: 042
     Dates: start: 20210529, end: 20210601
  55. WINUF [Concomitant]
     Dosage: 1085 ML, QD
     Route: 042
     Dates: start: 20220124, end: 20220125
  56. XYZAL [Concomitant]
     Active Substance: LEVOCETIRIZINE DIHYDROCHLORIDE
     Indication: Pruritus
     Dosage: 1 TAB, QD
     Route: 048
     Dates: start: 20210608, end: 20210620
  57. DEXAMETHASONE SODIUM PHOSPHATE [Concomitant]
     Active Substance: DEXAMETHASONE SODIUM PHOSPHATE
     Indication: Prophylaxis
     Dosage: 1 AMP, QD
     Route: 042
     Dates: start: 20210204
  58. GRASIN [Concomitant]
     Indication: Neutrophil count decreased
     Dosage: 1 AMP ONCE (CONCENTRATION: 300UG/0.7ML)
     Route: 058
     Dates: start: 20210614, end: 20210614
  59. GRASIN [Concomitant]
     Indication: Neutrophil count decreased
     Dosage: 1 AMP ONCE (CONCENTRATION: 300 MCG/0.7 ML)
     Route: 058
     Dates: start: 20210716, end: 20210716
  60. GRASIN [Concomitant]
     Dosage: 300 MCG ONCE (CONCENTRATION: 300 MCG/0.7 ML)
     Route: 058
     Dates: start: 20210802, end: 20210802
  61. GASTER [Concomitant]
     Active Substance: FAMOTIDINE
     Indication: Prophylaxis
     Dosage: 1 TAB BID
     Route: 048
     Dates: start: 20210628, end: 20210705
  62. ACETAMINOPHEN\TRAMADOL [Concomitant]
     Active Substance: ACETAMINOPHEN\TRAMADOL
     Indication: Prophylaxis
     Dosage: 1 TAB, PRN
     Route: 048
     Dates: start: 20210906
  63. MOPRIDE [MOSAPRIDE CITRATE] [Concomitant]
     Indication: Prophylaxis
     Dosage: 1 TAB TID
     Route: 048
     Dates: start: 20210923, end: 20211001
  64. MOPRIDE [MOSAPRIDE CITRATE] [Concomitant]
     Dosage: 1 TAB TID
     Route: 048
     Dates: start: 20211029
  65. K-CONTIN CONTINUS [Concomitant]
     Indication: Prophylaxis
     Dosage: 1 TAB, BID
     Route: 048
     Dates: start: 20211130, end: 20211202
  66. K-CONTIN CONTINUS [Concomitant]
     Dosage: 1 TAB, TID
     Route: 048
     Dates: start: 20220127, end: 20220130
  67. OXYCODONE HYDROCHLORIDE [Concomitant]
     Active Substance: OXYCODONE HYDROCHLORIDE
     Indication: Prophylaxis
     Dosage: 1 TAB, PRN
     Route: 048
     Dates: start: 20211130, end: 20211202
  68. CITOPCIN [CIPROFLOXACIN HYDROCHLORIDE] [Concomitant]
     Indication: Cholangitis
     Dosage: 2 TAB, BID
     Route: 048
     Dates: start: 20220104, end: 20220307
  69. SMOFKABIVEN PERIPHERAL [Concomitant]
     Indication: Prophylaxis
     Dosage: 1206 ML, QD
     Route: 042
     Dates: start: 20220123, end: 20220123
  70. PENIRAMIN [Concomitant]
     Indication: Prophylaxis
     Dosage: 1 AMP ONCE
     Route: 042
     Dates: start: 20220124, end: 20220124
  71. FLASINYL [Concomitant]
     Indication: Cholangitis
     Route: 048
  72. NUCYNTA [Concomitant]
     Active Substance: TAPENTADOL HYDROCHLORIDE
     Indication: Prophylaxis
     Dosage: 1 TAB BID
     Route: 048
     Dates: start: 20211129, end: 20211201
  73. DEXA-S [Concomitant]
     Indication: Prophylaxis

REACTIONS (6)
  - Death [Fatal]
  - Cholangitis [Recovered/Resolved]
  - Haematochezia [Recovered/Resolved]
  - Liver abscess [Recovered/Resolved]
  - Intentional dose omission [Unknown]
  - Off label use [Unknown]

NARRATIVE: CASE EVENT DATE: 20210525
